FAERS Safety Report 5771177-0 (Version None)
Quarter: 2008Q2

REPORT INFORMATION
  Report Type: 
  Country: None (occurrence: None)
  Receive Date: 20080613
  Receipt Date: 20080530
  Transmission Date: 20081010
  Serious: No
  Sender: FDA-Public Use
  Company Number: US-ABBOTT-08P-163-0454433-00

PATIENT
  Weight: 70.824 kg

DRUGS (5)
  1. HUMIRA [Suspect]
     Indication: CROHN'S DISEASE
     Dosage: LOADING DOSE
     Route: 058
     Dates: start: 20071001, end: 20071001
  2. HUMIRA [Suspect]
     Indication: INFLAMMATORY BOWEL DISEASE
     Dates: start: 20071001
  3. CIPROFLOXACIN HCL [Concomitant]
     Indication: FISTULA
     Route: 048
  4. CIPROFLOXACIN HCL [Concomitant]
     Indication: PERIANAL ABSCESS
  5. GABAPENTIN [Concomitant]
     Indication: SPINAL COLUMN STENOSIS
     Route: 048

REACTIONS (2)
  - ARTHRALGIA [None]
  - JOINT SWELLING [None]
